FAERS Safety Report 12555508 (Version 1)
Quarter: 2016Q3

REPORT INFORMATION
  Report Type: Spontaneous
  Country: FR (occurrence: FR)
  Receive Date: 20160714
  Receipt Date: 20160714
  Transmission Date: 20161109
  Serious: Yes (Other)
  Sender: FDA-Public Use
  Company Number: FR-AUROBINDO-AUR-APL-2016-08805

PATIENT
  Age: 45 Year
  Sex: Female

DRUGS (3)
  1. PAROXETINE ARROW [Suspect]
     Active Substance: PAROXETINE
     Indication: MAJOR DEPRESSION
     Dosage: 10 MG, ONCE A DAY
     Route: 048
     Dates: start: 20160510, end: 20160528
  2. SERESTA [Concomitant]
     Active Substance: OXAZEPAM
     Indication: MAJOR DEPRESSION
     Dosage: 1 DF, DAILY
     Route: 048
     Dates: start: 20160329
  3. TERALITHE [Concomitant]
     Active Substance: LITHIUM CARBONATE
     Indication: BIPOLAR DISORDER
     Dosage: 4 DF, DAILY
     Route: 048
     Dates: start: 20060101

REACTIONS (2)
  - Oromandibular dystonia [Recovered/Resolved]
  - Haematoma [Recovered/Resolved]

NARRATIVE: CASE EVENT DATE: 20160515
